FAERS Safety Report 12602955 (Version 1)
Quarter: 2016Q3

REPORT INFORMATION
  Report Type: Spontaneous
  Country: JP (occurrence: JP)
  Receive Date: 20160728
  Receipt Date: 20160728
  Transmission Date: 20161109
  Serious: Yes (Death)
  Sender: FDA-Public Use
  Company Number: JP-VIFOR (INTERNATIONAL) INC.-VIT-2016-03694

PATIENT
  Age: 75 Year
  Sex: Male

DRUGS (12)
  1. E KEPPRA [Concomitant]
     Active Substance: LEVETIRACETAM
     Route: 065
  2. BAYASPIRIN [Concomitant]
     Active Substance: ASPIRIN
  3. NORVASC [Concomitant]
     Active Substance: AMLODIPINE BESYLATE
  4. CERNILTON [Concomitant]
  5. LYRICA [Concomitant]
     Active Substance: PREGABALIN
  6. PLAVIX [Concomitant]
     Active Substance: CLOPIDOGREL BISULFATE
  7. URSO [Concomitant]
     Active Substance: URSODIOL
  8. TEGRETOL [Concomitant]
     Active Substance: CARBAMAZEPINE
  9. VELPHORO [Suspect]
     Active Substance: FERRIC OXYHYDROXIDE
     Indication: HYPERPHOSPHATAEMIA
     Dates: start: 20151217, end: 20160212
  10. TAKEPRON [Concomitant]
     Active Substance: LANSOPRAZOLE
     Route: 065
  11. MAGMITT [Concomitant]
     Active Substance: MAGNESIUM OXIDE
  12. RISUMIC [Concomitant]
     Active Substance: AMEZINIUM METILSULFATE

REACTIONS (1)
  - Myocardial infarction [Fatal]

NARRATIVE: CASE EVENT DATE: 20160213
